FAERS Safety Report 5562376-1 (Version None)
Quarter: 2007Q4

REPORT INFORMATION
  Report Type: 
  Country: None (occurrence: None)
  Receive Date: 20071215
  Receipt Date: 20070829
  Transmission Date: 20080405
  Serious: No
  Sender: FDA-Public Use
  Company Number: US-AMGEN-US240997

PATIENT
  Sex: Male

DRUGS (5)
  1. ARANESP [Suspect]
     Indication: DRUG USE FOR UNKNOWN INDICATION
     Route: 058
     Dates: start: 20070301
  2. ARANESP [Suspect]
     Dates: start: 20070701
  3. ARANESP [Suspect]
     Dates: start: 20070821
  4. LISINOPRIL [Concomitant]
     Route: 065
  5. CALCITRIOL [Concomitant]
     Route: 065

REACTIONS (4)
  - HAEMOGLOBIN DECREASED [None]
  - HAEMORRHAGE [None]
  - PALPITATIONS [None]
  - TRANSFERRIN SATURATION DECREASED [None]
